FAERS Safety Report 6134283-7 (Version None)
Quarter: 2009Q1

REPORT INFORMATION
  Report Type: 
  Country: None (occurrence: None)
  Receive Date: 20090325
  Receipt Date: 20090319
  Transmission Date: 20090719
  Serious: Yes (Life-Threatening)
  Sender: FDA-Public Use
  Company Number: 2009-01091

PATIENT
  Age: 63 Year
  Sex: Male
  Weight: 81.6 kg

DRUGS (10)
  1. VELCADE [Suspect]
     Indication: MULTIPLE MYELOMA
     Dosage: 2.7 MG, INTRAVENOUS
     Route: 042
     Dates: start: 20080715, end: 20080725
  2. THALIDOMIDE [Suspect]
     Indication: MULTIPLE MYELOMA
     Dosage: 200 MG, ORAL
     Route: 048
     Dates: start: 20080715, end: 20080805
  3. DEXAMETHASONE TAB [Suspect]
     Indication: MULTIPLE MYELOMA
     Dosage: 40 MG, ORAL
     Route: 048
     Dates: start: 20080715, end: 20080715
  4. VALACYCLOVIR HCL [Concomitant]
  5. BACTRIM [Concomitant]
  6. MIRTAZAPINE [Concomitant]
  7. BROMAZEPAM (BROMAZEPAM) [Concomitant]
  8. ZOPICLONE (ZOPICLONE) [Concomitant]
  9. LANSOPRAZOLE [Concomitant]
  10. GELOX (MAGNESIUM HYDROXIDE, ALUMINIUM SILICATE, ALUMINIUM HYDROXIDE) [Concomitant]

REACTIONS (2)
  - PULMONARY EMBOLISM [None]
  - PULMONARY INFARCTION [None]
